FAERS Safety Report 5637184-3 (Version None)
Quarter: 2008Q1

REPORT INFORMATION
  Report Type: 
  Country: None (occurrence: None)
  Receive Date: 20080225
  Receipt Date: 20080211
  Transmission Date: 20080703
  Serious: Yes (Death)
  Sender: FDA-Public Use
  Company Number: BE-AMGEN-UK265041

PATIENT
  Sex: Female
  Weight: 64.5 kg

DRUGS (6)
  1. KEPIVANCE [Suspect]
     Indication: MUCOSAL INFLAMMATION
     Route: 058
     Dates: start: 20080207, end: 20080209
  2. CARMUSTINE [Suspect]
     Route: 042
     Dates: start: 20080210, end: 20080210
  3. TAVANIC [Concomitant]
     Route: 048
     Dates: start: 20080207, end: 20080210
  4. DIFLUCAN [Concomitant]
     Route: 048
  5. ZYRTEC [Concomitant]
     Route: 048
     Dates: start: 20080207, end: 20080210
  6. SOLU-MEDROL [Concomitant]
     Route: 042
     Dates: start: 20080210, end: 20080210

REACTIONS (4)
  - CARDIAC ARREST [None]
  - CARDIAC FAILURE [None]
  - HYPERSENSITIVITY [None]
  - SUDDEN DEATH [None]
